FAERS Safety Report 4619336-4 (Version None)
Quarter: 2005Q2

REPORT INFORMATION
  Report Type: 
  Country: None (occurrence: None)
  Receive Date: 20050321
  Receipt Date: 20040316
  Transmission Date: 20051028
  Serious: Yes (Hospitalization)
  Sender: FDA-Public Use
  Company Number: 2004-03-1152

PATIENT
  Age: 22 Year
  Sex: Female

DRUGS (3)
  1. PEG-INTRON [Suspect]
     Indication: HEPATITIS C
     Dosage: SUBCUTANEOUS
     Route: 058
  2. REBETOL [Suspect]
     Indication: HEPATITIS C
     Dosage: ORAL
     Route: 048
     Dates: end: 20040317
  3. ALPRAZOLAM [Suspect]
     Dosage: 10-12 TABLETS ORAL
     Route: 048
     Dates: start: 20040316

REACTIONS (1)
  - SUICIDE ATTEMPT [None]
